FAERS Safety Report 7519648-0 (Version None)
Quarter: 2011Q2

REPORT INFORMATION
  Report Type: 
  Country: None (occurrence: None)
  Receive Date: 20110602
  Receipt Date: 20110525
  Transmission Date: 20111010
  Serious: Yes (Hospitalization)
  Sender: FDA-Public Use
  Company Number: B0704093A

PATIENT
  Sex: Male
  Weight: 57 kg

DRUGS (15)
  1. ENTERONON-R [Concomitant]
     Dosage: 3IUAX PER DAY
     Route: 048
     Dates: end: 20101217
  2. RAMELTEON [Concomitant]
     Dosage: 2IUAX PER DAY
     Route: 042
     Dates: start: 20101115, end: 20101116
  3. HEPARIN [Concomitant]
     Route: 042
     Dates: start: 20101115, end: 20101116
  4. NEUTROGIN [Concomitant]
     Dates: start: 20101119, end: 20101202
  5. SULFAMETHOXAZOLE [Concomitant]
     Dosage: 1IUAX PER DAY
     Route: 048
  6. METHYCOBAL [Concomitant]
     Dosage: 1500MCG PER DAY
     Route: 048
  7. PURSENNID [Concomitant]
     Dosage: 2IUAX PER DAY
     Route: 048
     Dates: end: 20101127
  8. ACIDLESS [Concomitant]
     Dosage: 24ML PER DAY
     Route: 048
     Dates: end: 20101203
  9. MAGMITT [Concomitant]
     Dosage: 1980MG PER DAY
     Route: 048
     Dates: end: 20101208
  10. ALKERAN [Suspect]
     Indication: STEM CELL TRANSPLANT
     Dosage: 160MG PER DAY
     Route: 042
     Dates: start: 20101115, end: 20101116
  11. ALLOID G [Concomitant]
     Dosage: 30ML PER DAY
     Route: 048
     Dates: end: 20101124
  12. RABEPRAZOLE SODIUM [Concomitant]
     Dosage: 10MG PER DAY
     Route: 048
  13. CHINESE MEDICINE [Concomitant]
     Dosage: 3IUAX PER DAY
     Route: 048
     Dates: start: 20101116, end: 20101118
  14. MUCOSTA [Concomitant]
     Dosage: 300MG PER DAY
     Route: 048
  15. EMEND [Concomitant]
     Route: 048
     Dates: start: 20101115, end: 20101117

REACTIONS (1)
  - DECREASED APPETITE [None]
